FAERS Safety Report 22359737 (Version 1)
Quarter: 2023Q2

REPORT INFORMATION
  Report Type: Spontaneous
  Country: CN (occurrence: None)
  Receive Date: 20230524
  Receipt Date: 20230524
  Transmission Date: 20230722
  Serious: Yes (Hospitalization)
  Sender: FDA-Public Use
  Company Number: 2023A101902

PATIENT
  Age: 83 Year
  Sex: Male

DRUGS (2)
  1. BEVESPI AEROSPHERE [Suspect]
     Active Substance: FORMOTEROL FUMARATE\GLYCOPYRROLATE
     Indication: Chronic obstructive pulmonary disease
     Route: 055
  2. SYMBICORT [Concomitant]
     Active Substance: BUDESONIDE\FORMOTEROL FUMARATE DIHYDRATE
     Route: 055

REACTIONS (8)
  - COVID-19 [Unknown]
  - Fungal infection [Unknown]
  - Condition aggravated [Unknown]
  - Dyspnoea [Unknown]
  - Device difficult to use [Unknown]
  - Incorrect dosage administered [Unknown]
  - Nasopharyngitis [Unknown]
  - Mental disorder [Unknown]
